FAERS Safety Report 18656681 (Version 2)
Quarter: 2021Q1

REPORT INFORMATION
  Report Type: Spontaneous
  Country: US (occurrence: US)
  Receive Date: 20201223
  Receipt Date: 20210324
  Transmission Date: 20210419
  Serious: Yes (Other)
  Sender: FDA-Public Use
  Company Number: US-PURDUE-USA-2020-0180545

PATIENT
  Sex: Male

DRUGS (2)
  1. DILAUDID [Suspect]
     Active Substance: HYDROMORPHONE HYDROCHLORIDE
     Indication: PAIN
     Dosage: UNK
     Route: 048
  2. OXYCONTIN [Suspect]
     Active Substance: OXYCODONE HYDROCHLORIDE
     Indication: PRODUCT USED FOR UNKNOWN INDICATION
     Dosage: UNK
     Route: 048

REACTIONS (11)
  - Loss of consciousness [Unknown]
  - Somnolence [Unknown]
  - Hyperhidrosis [Unknown]
  - Weight decreased [Unknown]
  - Confusional state [Unknown]
  - Disorientation [Unknown]
  - Fall [Unknown]
  - Drug dependence [Unknown]
  - Rhinorrhoea [Unknown]
  - Decreased appetite [Unknown]
  - Cognitive disorder [Unknown]
